FAERS Safety Report 19193602 (Version 1)
Quarter: 2021Q2

REPORT INFORMATION
  Report Type: Report from Study
  Country: IN (occurrence: IN)
  Receive Date: 20210429
  Receipt Date: 20210429
  Transmission Date: 20210717
  Serious: Yes (Hospitalization)
  Sender: FDA-Public Use
  Company Number: IN-CIPLA LTD.-2018IN24061

PATIENT

DRUGS (21)
  1. TRAMADOL. [Concomitant]
     Active Substance: TRAMADOL
     Indication: PAIN MANAGEMENT
     Dosage: 100 MILLIGRAM, STAT (INJECTION)
     Route: 042
     Dates: start: 20181228, end: 20181228
  2. FEVASTIN [Concomitant]
     Indication: PAIN
     Dosage: 1 GRAM, TID (INJECTION)
     Route: 042
     Dates: start: 20181228, end: 20181229
  3. NORMAL SALINE [Concomitant]
     Active Substance: SODIUM CHLORIDE
     Indication: FLUID REPLACEMENT
     Dosage: 500 MILLILITER, (60 ML/HR), (INTRAVENOUS FLUID)
     Route: 042
     Dates: start: 20181228, end: 20181228
  4. RITONAVIR. [Suspect]
     Active Substance: RITONAVIR
     Indication: HIV INFECTION
     Dosage: 100 MILLIGRAM, QD, BOOSTER DOSE
     Route: 048
     Dates: start: 20181003
  5. CROCIN                             /00020001/ [Concomitant]
     Indication: PAIN
     Dosage: 650 MILLIGRAM, TID
     Route: 048
     Dates: start: 20181229
  6. CROCIN                             /00020001/ [Concomitant]
     Indication: PYREXIA
  7. ULTRACET [Concomitant]
     Active Substance: ACETAMINOPHEN\TRAMADOL HYDROCHLORIDE
     Indication: PAIN
     Dosage: 1 DOSAGE FORM (TABLET), SOS
     Route: 048
     Dates: start: 20181229
  8. KABIMOL [Concomitant]
     Indication: PAIN MANAGEMENT
     Dosage: 1 GRAM, STAT (INJECTION)
     Route: 042
     Dates: start: 20181228, end: 20181228
  9. NORMAL SALINE [Concomitant]
     Active Substance: SODIUM CHLORIDE
     Indication: ELECTROLYTE SUBSTITUTION THERAPY
  10. DYNAPAR                            /00301402/ [Concomitant]
     Indication: PAIN MANAGEMENT
     Dosage: 75 MILLIGRAM, STAT (INJECTION)
     Route: 042
     Dates: start: 20181228, end: 20181228
  11. AUGMENTIN [Concomitant]
     Active Substance: AMOXICILLIN\CLAVULANATE POTASSIUM
     Indication: INFECTION PROPHYLAXIS
     Dosage: 1.2 GRAM, STAT (INJECTION)
     Route: 042
     Dates: start: 20181228, end: 20181228
  12. LACTATED RINGERS SOLUTION [Concomitant]
     Active Substance: CALCIUM CHLORIDE\POTASSIUM CHLORIDE\SODIUM CHLORIDE\SODIUM LACTATE
     Indication: ELECTROLYTE SUBSTITUTION THERAPY
     Dosage: 500 MILLILITER, (60 ML/HR), (INTRAVENOUS FLUID)
     Route: 042
     Dates: start: 20181228, end: 20181228
  13. LACTATED RINGERS SOLUTION [Concomitant]
     Active Substance: CALCIUM CHLORIDE\POTASSIUM CHLORIDE\SODIUM CHLORIDE\SODIUM LACTATE
     Indication: FLUID REPLACEMENT
  14. DARUNAVIR [Suspect]
     Active Substance: DARUNAVIR
     Indication: HIV INFECTION
     Dosage: 800 MILLIGRAM, QD
     Route: 048
     Dates: start: 20181003, end: 20190325
  15. TRIMZOLE DS [Concomitant]
     Indication: INFECTION PROPHYLAXIS
     Dosage: 2 GRAM, QD
     Route: 048
     Dates: start: 20181003
  16. CIPLOX TZ [Concomitant]
     Indication: INFECTION PROPHYLAXIS
     Dosage: 1 DOSAGE FORM (TABLET), BID
     Route: 048
     Dates: start: 20181228
  17. LACTIHEP                           /00985601/ [Concomitant]
     Indication: CONSTIPATION
     Dosage: 30 MILLILITER, HS (SYRUP)
     Route: 048
     Dates: start: 20181229
  18. DOLUTEGRAVIR [Concomitant]
     Active Substance: DOLUTEGRAVIR
     Indication: HIV INFECTION
     Dosage: 50 MILLIGRAM, QD
     Route: 048
     Dates: start: 20180827
  19. LACTIFIBER                         /06703001/ [Concomitant]
     Indication: CONSTIPATION
     Dosage: UNK, SOS
     Route: 048
     Dates: start: 20181229
  20. EMSET [Concomitant]
     Indication: PROPHYLAXIS OF NAUSEA AND VOMITING
     Dosage: 4 MILLIGRAM, STAT (INJECTION)
     Route: 042
     Dates: start: 20181228, end: 20181228
  21. TRAMADOL. [Concomitant]
     Active Substance: TRAMADOL
     Indication: PAIN
     Dosage: 50 MILLIGRAM, TID (INJECTION)
     Route: 042
     Dates: start: 20181228, end: 20181229

REACTIONS (3)
  - Haemorrhoids [Recovered/Resolved]
  - Platelet distribution width decreased [Unknown]
  - Hyperlipidaemia [Unknown]

NARRATIVE: CASE EVENT DATE: 20181228
